FAERS Safety Report 11495174 (Version 1)
Quarter: 2015Q3

REPORT INFORMATION
  Report Type: Spontaneous
  Country: US (occurrence: None)
  Receive Date: 20150910
  Receipt Date: 20150910
  Transmission Date: 20151125
  Serious: Yes (Other)
  Sender: FDA-Public Use
  Company Number: None

PATIENT
  Age: 33 Year
  Sex: Male
  Weight: 74.84 kg

DRUGS (2)
  1. SUBOXONE [Suspect]
     Active Substance: BUPRENORPHINE HYDROCHLORIDE\NALOXONE HYDROCHLORIDE
     Indication: DRUG DEPENDENCE
     Dosage: TAKEN UNDER THE TONGUE
     Dates: start: 20140211, end: 20140225
  2. SUBOXONE ALBUTEROL [Concomitant]

REACTIONS (2)
  - Tongue ulceration [None]
  - Oral mucosal blistering [None]

NARRATIVE: CASE EVENT DATE: 20140211
